FAERS Safety Report 5211895-6 (Version None)
Quarter: 2007Q1

REPORT INFORMATION
  Report Type: 
  Country: None (occurrence: None)
  Receive Date: 20070116
  Receipt Date: 20070116
  Transmission Date: 20070707
  Serious: Yes (Hospitalization)
  Sender: FDA-Public Use
  Company Number: None

PATIENT
  Age: 40 Year
  Sex: Female
  Weight: 74.8435 kg

DRUGS (2)
  1. KENALOG-40 [Suspect]
     Indication: BACK PAIN
     Dates: start: 20061103
  2. KENALOG-40 [Suspect]
     Indication: INTERVERTEBRAL DISC PROTRUSION
     Dates: start: 20061103

REACTIONS (13)
  - ASTHENIA [None]
  - DRUG INEFFECTIVE [None]
  - FATIGUE [None]
  - HEART RATE INCREASED [None]
  - HYPERTENSION [None]
  - IRRITABILITY [None]
  - MENORRHAGIA [None]
  - MENSTRUATION DELAYED [None]
  - MOOD SWINGS [None]
  - MUSCLE SPASMS [None]
  - NIGHT SWEATS [None]
  - PALPITATIONS [None]
  - TREMOR [None]
